FAERS Safety Report 12071006 (Version 1)
Quarter: 2016Q1

REPORT INFORMATION
  Report Type: Spontaneous
  Country: FR (occurrence: FR)
  Receive Date: 20160211
  Receipt Date: 20160211
  Transmission Date: 20160526
  Serious: Yes (Life-Threatening, Hospitalization, Other)
  Sender: FDA-Public Use
  Company Number: FR-PFIZER INC-2016076873

PATIENT
  Age: 82 Year
  Sex: Male

DRUGS (3)
  1. IRENAT [Suspect]
     Active Substance: POTASSIUM PERCHLORATE
     Indication: HYPERTHYROIDISM
     Route: 048
  2. MEDROL [Suspect]
     Active Substance: METHYLPREDNISOLONE
     Indication: HYPERTHYROIDISM
     Dosage: 40 MG, 1X/DAY
     Route: 048
  3. NEO-MERCAZOLE [Concomitant]
     Active Substance: CARBIMAZOLE
     Indication: HYPERTHYROIDISM
     Dosage: 40 MG, 1X/DAY
     Route: 048

REACTIONS (3)
  - Intentional self-injury [Unknown]
  - Suicide attempt [Unknown]
  - Product use issue [Unknown]

NARRATIVE: CASE EVENT DATE: 20160101
